FAERS Safety Report 5136727-6 (Version None)
Quarter: 2006Q4

REPORT INFORMATION
  Report Type: 
  Country: None (occurrence: None)
  Receive Date: 20061023
  Receipt Date: 20061005
  Transmission Date: 20070319
  Serious: Yes (Other)
  Sender: FDA-Public Use
  Company Number: DSA_28813_2006

PATIENT
  Age: 86 Year
  Sex: Male

DRUGS (5)
  1. ENALAPRIL MALEATE [Suspect]
     Indication: HYPERTENSION
     Dosage: DF UNK PO
     Route: 048
     Dates: start: 19970101
  2. ENALAPRIL MALEATE [Suspect]
     Indication: HYPERTENSION
     Dosage: DF
     Dates: end: 20060501
  3. ATORVASTATIN CALCIUM [Concomitant]
  4. BENDROFLUMETHIAZIDE [Concomitant]
  5. MINOXIDIL [Concomitant]

REACTIONS (1)
  - WHEEZING [None]
